FAERS Safety Report 11431992 (Version 2)
Quarter: 2015Q4

REPORT INFORMATION
  Report Type: Spontaneous
  Country: JP (occurrence: JP)
  Receive Date: 20150828
  Receipt Date: 20151023
  Transmission Date: 20160304
  Serious: Yes (Life-Threatening, Hospitalization)
  Sender: FDA-Public Use
  Company Number: JP-BAYER-2015-406354

PATIENT
  Age: 59 Year
  Sex: Male
  Weight: 64 kg

DRUGS (14)
  1. PROHEPARUM [Concomitant]
     Active Substance: CHOLINE BITARTRATE\CYSTEINE\INOSITOL\MAMMAL LIVER
     Indication: HEPATIC FUNCTION ABNORMAL
     Dosage: DAILY DOSE 2 DF
     Route: 048
  2. POTASSIUM [POTASSIUM CHLORIDE] [Concomitant]
     Indication: HYPOKALAEMIA
     Dosage: DAILY DOSE 1200 MG
     Route: 048
  3. SPIRONOLACTONE. [Concomitant]
     Active Substance: SPIRONOLACTONE
     Indication: POLYURIA
  4. TOLVAPTAN [Concomitant]
     Active Substance: TOLVAPTAN
     Indication: ASCITES
     Dosage: DAILY DOSE 7.5 MG
     Route: 048
     Dates: start: 20140318
  5. TOLVAPTAN [Concomitant]
     Active Substance: TOLVAPTAN
     Indication: POLYURIA
  6. FUROSEMIDE. [Concomitant]
     Active Substance: FUROSEMIDE
     Indication: ASCITES
     Dosage: DAILY DOSE 40 MG
     Route: 048
  7. NEXAVAR [Suspect]
     Active Substance: SORAFENIB
     Indication: HEPATOCELLULAR CARCINOMA
     Dosage: 400 MG, QD
     Route: 048
     Dates: start: 20150825, end: 20150830
  8. PARIET [Concomitant]
     Active Substance: RABEPRAZOLE SODIUM
     Indication: GASTRITIS
  9. GLYCYRON [GLYCYRRHIZIC ACID] [Concomitant]
     Indication: HEPATIC FUNCTION ABNORMAL
     Dosage: DAILY DOSE 4 DF
     Route: 048
  10. PARIET [Concomitant]
     Active Substance: RABEPRAZOLE SODIUM
     Indication: GASTROOESOPHAGEAL REFLUX DISEASE
     Dosage: DAILY DOSE 20 MG
     Route: 048
  11. FUROSEMIDE. [Concomitant]
     Active Substance: FUROSEMIDE
     Indication: POLYURIA
  12. SPIRONOLACTONE. [Concomitant]
     Active Substance: SPIRONOLACTONE
     Indication: ASCITES
     Dosage: DAILY DOSE 100 MG
     Route: 048
  13. BARACLUDE [Concomitant]
     Active Substance: ENTECAVIR
     Indication: HEPATITIS
     Dosage: DAILY DOSE .5 MG
     Route: 048
  14. NEXAVAR [Suspect]
     Active Substance: SORAFENIB
     Indication: HEPATOCELLULAR CARCINOMA
     Dosage: 400 MG, QD
     Route: 048
     Dates: start: 20150804, end: 20150808

REACTIONS (2)
  - Hepatic encephalopathy [Recovered/Resolved]
  - Hepatic encephalopathy [Recovered/Resolved]

NARRATIVE: CASE EVENT DATE: 20150808
